FAERS Safety Report 8880871 (Version 1)
Quarter: 2012Q4

REPORT INFORMATION
  Report Type: 
  Country: CN (occurrence: CN)
  Receive Date: 20121101
  Receipt Date: 20121101
  Transmission Date: 20130627
  Serious: Yes (Hospitalization)
  Sender: FDA-Public Use
  Company Number: CN-ELI_LILLY_AND_COMPANY-CN201210006637

PATIENT
  Sex: Male
  Weight: 64 kg

DRUGS (2)
  1. PROZAC [Suspect]
     Indication: ANXIETY
     Dosage: 1 DF, qd
     Route: 048
  2. PROZAC [Suspect]
     Dosage: 30 mg, qd
     Route: 048
     Dates: start: 20100209

REACTIONS (3)
  - Hospitalisation [Recovered/Resolved]
  - Nausea [Recovered/Resolved]
  - Decreased appetite [Recovered/Resolved]
